FAERS Safety Report 8001897-9 (Version None)
Quarter: 2011Q4

REPORT INFORMATION
  Report Type: 
  Country: None (occurrence: None)
  Receive Date: 20111222
  Receipt Date: 20111213
  Transmission Date: 20120403
  Serious: Yes (Other)
  Sender: FDA-Public Use
  Company Number: CA-UCBSA-047534

PATIENT
  Age: 48 Year
  Sex: Female
  Weight: 90.9 kg

DRUGS (6)
  1. CIMZIA [Suspect]
     Indication: RHEUMATOID ARTHRITIS
     Dosage: Q2 WEEKS
     Route: 058
     Dates: start: 20110519
  2. HYDROCHLOROTHIAZIDE [Concomitant]
     Indication: HYPERTENSION
     Route: 048
     Dates: start: 20111205
  3. SULFASALAZINE [Concomitant]
     Indication: RHEUMATOID ARTHRITIS
     Route: 048
     Dates: start: 20100127
  4. NPH INSULIN [Concomitant]
     Indication: DIABETES MELLITUS
     Route: 058
  5. AVAPRO [Concomitant]
     Indication: HYPERTENSION
     Route: 048
     Dates: start: 20111205
  6. PLAQUENIL [Concomitant]
     Indication: RHEUMATOID ARTHRITIS
     Route: 048
     Dates: start: 20100712

REACTIONS (2)
  - DIABETIC FOOT [None]
  - HYPERTENSION [None]
